FAERS Safety Report 9714656 (Version 3)
Quarter: 2014Q1

REPORT INFORMATION
  Report Type: Spontaneous
  Country: DE (occurrence: DE)
  Receive Date: 20131126
  Receipt Date: 20140121
  Transmission Date: 20141002
  Serious: No
  Sender: FDA-Public Use
  Company Number: DE-UCBSA-103872

PATIENT
  Age: 62 Year
  Sex: Female
  Weight: 62 kg

DRUGS (4)
  1. KEPPRA [Suspect]
     Indication: PROPHYLAXIS
     Route: 048
     Dates: start: 20130620, end: 20130704
  2. KEPPRA [Suspect]
     Indication: PROPHYLAXIS
     Route: 048
     Dates: start: 20130704
  3. CANDESARTAN [Concomitant]
     Indication: HYPERTENSION
     Route: 048
     Dates: start: 20130620
  4. L-THYROXIN [Concomitant]
     Indication: HYPOTHYROIDISM
     Route: 048
     Dates: start: 20130620

REACTIONS (1)
  - Hyponatraemia [Recovered/Resolved]
